FAERS Safety Report 16823753 (Version 2)
Quarter: 2020Q2

REPORT INFORMATION
  Report Type: Spontaneous
  Country: US (occurrence: US)
  Receive Date: 20190918
  Receipt Date: 20200625
  Transmission Date: 20200713
  Serious: Yes (Other)
  Sender: FDA-Public Use
  Company Number: US-SA-2019SA255585

PATIENT

DRUGS (13)
  1. LEVAQUIN [Concomitant]
     Active Substance: LEVOFLOXACIN
     Dosage: 1 DF, QD (TAKE 1 PO DAILY)
     Route: 048
     Dates: start: 20140127
  2. DEXAMETHASONE. [Concomitant]
     Active Substance: DEXAMETHASONE
     Dosage: TAKE ONE TABLET THE DAY BEFORE, DAY OF AND DAY
     Route: 048
     Dates: start: 20140127
  3. PERJETA [Concomitant]
     Active Substance: PERTUZUMAB
     Indication: BREAST CANCER FEMALE
     Dosage: UNK UNK, Q3W
     Dates: start: 20140129, end: 20140129
  4. HERCEPTIN [Concomitant]
     Active Substance: TRASTUZUMAB
     Dosage: UNK UNK, Q3W
     Dates: start: 20140522, end: 20140522
  5. HERCEPTIN [Concomitant]
     Active Substance: TRASTUZUMAB
     Indication: BREAST CANCER FEMALE
     Dosage: UNK UNK, Q3W
     Dates: start: 20140129, end: 20140129
  6. NYSTATIN. [Concomitant]
     Active Substance: NYSTATIN
     Dosage: 5 ML,  (TAKE 5 ML SWISH AND SWALLOW TID)
     Route: 048
     Dates: start: 20140205
  7. ZOFRAN [Concomitant]
     Active Substance: ONDANSETRON HYDROCHLORIDE
     Indication: NAUSEA
     Dosage: 1 DF, PRN (DISPERSIBLE LINGUAL TAKE 1 ODT PO Q8H PRN)
     Route: 048
     Dates: start: 20140127
  8. PERJETA [Concomitant]
     Active Substance: PERTUZUMAB
     Dosage: UNK UNK, Q3W
     Dates: start: 20140522, end: 20140522
  9. PARAPLATIN [Concomitant]
     Active Substance: CARBOPLATIN
     Dosage: UNK UNK, Q3W
     Dates: start: 20140522, end: 20140522
  10. PROCHLORPERAZINE MALEATE. [Concomitant]
     Active Substance: PROCHLORPERAZINE MALEATE
     Indication: NAUSEA
     Dosage: 1 DF, PRN (1 PO Q6H PRN)
     Route: 048
     Dates: start: 20140127
  11. TAXOTERE [Suspect]
     Active Substance: DOCETAXEL
     Indication: BREAST CANCER FEMALE
     Dosage: 140 MG, Q3W
     Route: 042
     Dates: start: 20140129, end: 20140129
  12. TAXOTERE [Suspect]
     Active Substance: DOCETAXEL
     Dosage: 140 MG, Q3W
     Route: 042
     Dates: start: 20140522, end: 20140522
  13. PARAPLATIN [Concomitant]
     Active Substance: CARBOPLATIN
     Indication: BREAST CANCER FEMALE
     Dosage: UNK UNK, Q3W
     Dates: start: 20140129, end: 20140129

REACTIONS (6)
  - Alopecia [Recovering/Resolving]
  - Emotional distress [Unknown]
  - Psychological trauma [Unknown]
  - Impaired quality of life [Unknown]
  - Pain [Unknown]
  - Anxiety [Unknown]

NARRATIVE: CASE EVENT DATE: 20140205
